FAERS Safety Report 5931952-6 (Version None)
Quarter: 2008Q4

REPORT INFORMATION
  Report Type: 
  Country: None (occurrence: None)
  Receive Date: 20081027
  Receipt Date: 20081018
  Transmission Date: 20090506
  Serious: Yes (Other)
  Sender: FDA-Public Use
  Company Number: PHHY2008BR25295

PATIENT
  Age: 18 Year
  Sex: Female
  Weight: 50 kg

DRUGS (3)
  1. TEGRETOL [Suspect]
     Dosage: 10 TABLETS
  2. RISPERIDONE [Suspect]
     Dosage: 10 TABLETS
  3. SERTRALINE [Suspect]
     Dosage: 10 TABLETS

REACTIONS (2)
  - OVERDOSE [None]
  - SUICIDE ATTEMPT [None]
